FAERS Safety Report 5881577-6 (Version None)
Quarter: 2008Q3

REPORT INFORMATION
  Report Type: 
  Country: None (occurrence: None)
  Receive Date: 20080912
  Receipt Date: 20080701
  Transmission Date: 20090109
  Serious: No
  Sender: FDA-Public Use
  Company Number: US-ABBOTT-08P-163-0460824-00

PATIENT
  Sex: Female
  Weight: 58.566 kg

DRUGS (7)
  1. HUMIRA [Suspect]
     Indication: RHEUMATOID ARTHRITIS
     Route: 058
     Dates: start: 20060101, end: 20070101
  2. HUMIRA [Suspect]
     Route: 058
     Dates: start: 20070101
  3. METHOTREXATE SODIUM [Concomitant]
     Indication: INFECTION
     Route: 048
     Dates: start: 19880101
  4. LEFLUNOMIDE [Concomitant]
     Indication: ARTHRITIS
     Route: 048
     Dates: start: 19880101
  5. PREDNISONE TAB [Concomitant]
     Indication: ARTHRITIS
     Route: 048
  6. VITAMIN TAB [Concomitant]
     Indication: VITAMIN SUPPLEMENTATION
     Route: 048
  7. CALCIUM-SANDOZ [Concomitant]
     Indication: MINERAL SUPPLEMENTATION
     Route: 048

REACTIONS (4)
  - FINGER DEFORMITY [None]
  - INFLAMMATION [None]
  - RHEUMATOID ARTHRITIS [None]
  - TENDONITIS [None]
